FAERS Safety Report 8858198 (Version 1)
Quarter: 2012Q4

REPORT INFORMATION
  Report Type: 
  Country: US (occurrence: US)
  Receive Date: 20121024
  Receipt Date: 20121024
  Transmission Date: 20130627
  Serious: No
  Sender: FDA-Public Use
  Company Number: US-AMGEN-USASP2011067208

PATIENT
  Sex: Male

DRUGS (1)
  1. ENBREL [Suspect]
     Indication: PSORIATIC ARTHROPATHY
     Dosage: 50 mg, qwk
     Dates: start: 20110603

REACTIONS (5)
  - Tendon injury [Unknown]
  - Nausea [Unknown]
  - Asthenia [Unknown]
  - Generalised erythema [Unknown]
  - Urticaria [Unknown]
